FAERS Safety Report 18986076 (Version 1)
Quarter: 2021Q1

REPORT INFORMATION
  Report Type: Report from Study
  Country: GB (occurrence: GB)
  Receive Date: 20210309
  Receipt Date: 20210309
  Transmission Date: 20210420
  Serious: Yes (Other)
  Sender: FDA-Public Use
  Company Number: NVSC2021GB036746

PATIENT
  Sex: Female

DRUGS (1)
  1. HYRIMOZ [Suspect]
     Active Substance: ADALIMUMAB-ADAZ
     Indication: ANKYLOSING SPONDYLITIS
     Dosage: 40MG/0.8ML, EVERY OTHER WEEK
     Route: 058
     Dates: start: 20210128

REACTIONS (3)
  - Diarrhoea [Unknown]
  - Crohn^s disease [Unknown]
  - Frequent bowel movements [Unknown]
